FAERS Safety Report 20068550 (Version 11)
Quarter: 2025Q4

REPORT INFORMATION
  Report Type: Report from Study
  Country: US (occurrence: US)
  Receive Date: 20211115
  Receipt Date: 20251221
  Transmission Date: 20260117
  Serious: Yes (Other)
  Sender: PFIZER
  Company Number: US-PFIZER INC-202101550387

PATIENT
  Age: 74 Year
  Sex: Female

DRUGS (2)
  1. IBRANCE [Suspect]
     Active Substance: PALBOCICLIB
     Indication: Breast cancer female
     Dosage: TAKE 1 TABLET DAILY ON DAYS 1 THROUGH 21 EVERY 28 DAYS CYCLE
     Route: 048
     Dates: start: 20210202
  2. IBRANCE [Suspect]
     Active Substance: PALBOCICLIB
     Dosage: 100MG TABLET, 1 TABLET DAILY, DAYS 1-21 EVERY 28 DAYS
     Route: 048

REACTIONS (4)
  - Blindness [Not Recovered/Not Resolved]
  - Visual impairment [Unknown]
  - Alopecia [Unknown]
  - Oropharyngeal discomfort [Unknown]
